FAERS Safety Report 8769808 (Version 2)
Quarter: 2013Q1

REPORT INFORMATION
  Report Type: Report from Study
  Country: JP (occurrence: JP)
  Receive Date: 20120906
  Receipt Date: 20130115
  Transmission Date: 20140127
  Serious: Yes (Other)
  Sender: FDA-Public Use
  Company Number: JP-009507513-2012SP025633

PATIENT
  Age: 71 Year
  Sex: Male
  Weight: 59 kg

DRUGS (11)
  1. PEGINTRON [Suspect]
     Indication: CHRONIC HEPATITIS C
     Dosage: 1.5 MICROGRAM PER KILOGRAM, QW
     Route: 058
     Dates: start: 20120215, end: 20120802
  2. REBETOL [Suspect]
     Indication: CHRONIC HEPATITIS C
     Dosage: 600 MG, QD
     Route: 048
     Dates: start: 20120215, end: 20120227
  3. REBETOL [Suspect]
     Dosage: 400 MG, QD
     Route: 048
     Dates: start: 20120228, end: 20120308
  4. REBETOL [Suspect]
     Dosage: 200 MG, QD
     Route: 048
     Dates: start: 20120309, end: 20120314
  5. REBETOL [Suspect]
     Dosage: 200 MG, QOD
     Route: 048
     Dates: start: 20120315, end: 20120328
  6. REBETOL [Suspect]
     Dosage: 200 MG/3 DAYS
     Route: 048
     Dates: start: 20120329, end: 20120411
  7. REBETOL [Suspect]
     Dosage: 200 MG, QOD
     Route: 048
     Dates: start: 20120412, end: 20120802
  8. TELAVIC [Suspect]
     Indication: CHRONIC HEPATITIS C
     Dosage: 2250 MG, QD
     Route: 048
     Dates: start: 20120215, end: 20120426
  9. URSO [Concomitant]
     Indication: CHRONIC HEPATITIS C
     Dosage: 600 MG, QD
     Route: 048
     Dates: end: 20120215
  10. LOXONIN [Concomitant]
     Indication: PROPHYLAXIS
     Dosage: 600 MG/DAY AS NEEDED
     Route: 048
     Dates: end: 20120509
  11. AZULENE PREPARATION (SODIUM GUALENATE) [Concomitant]
     Indication: PROPHYLAXIS
     Dosage: 0.67 G, QD
     Route: 048
     Dates: end: 20120509

REACTIONS (2)
  - Drug eruption [Recovered/Resolved]
  - Anaemia [Recovered/Resolved]
